FAERS Safety Report 16674993 (Version 3)
Quarter: 2019Q3

REPORT INFORMATION
  Report Type: Spontaneous
  Country: US (occurrence: US)
  Receive Date: 20190806
  Receipt Date: 20190903
  Transmission Date: 20191004
  Serious: No
  Sender: FDA-Public Use
  Company Number: US-SA-2019SA208599

PATIENT
  Age: 79 Year
  Sex: Female
  Weight: 76 kg

DRUGS (2)
  1. CORTISONE [Concomitant]
     Active Substance: CORTISONE
  2. PRALUENT [Suspect]
     Active Substance: ALIROCUMAB
     Indication: BLOOD CHOLESTEROL
     Dosage: 75 MG, QOW
     Route: 058
     Dates: start: 20190628

REACTIONS (5)
  - Incorrect dose administered [Unknown]
  - Blood triglycerides increased [Unknown]
  - Wrong technique in device usage process [Unknown]
  - Product dose omission [Unknown]
  - Device issue [Unknown]

NARRATIVE: CASE EVENT DATE: 20190628
